FAERS Safety Report 5051646-1 (Version None)
Quarter: 2006Q3

REPORT INFORMATION
  Report Type: 
  Country: None (occurrence: None)
  Receive Date: 20060714
  Receipt Date: 20060609
  Transmission Date: 20061208
  Serious: Yes (Hospitalization, Other)
  Sender: FDA-Public Use
  Company Number: US-AVENTIS-200615158US

PATIENT
  Age: 46 Year
  Sex: Female

DRUGS (4)
  1. TAXOTERE [Suspect]
     Indication: BREAST CANCER
     Dosage: DOSE: UNK
     Dates: end: 20060401
  2. DOXORUBICIN HCL [Suspect]
     Indication: BREAST CANCER
     Dosage: DOSE: UNK
     Dates: end: 20060401
  3. CYTOXAN [Suspect]
     Indication: BREAST CANCER
     Dosage: DOSE: UNK
     Dates: end: 20060401
  4. DEXAMETHASONE TAB [Suspect]
     Indication: PREMEDICATION
     Dosage: DOSE: UNK

REACTIONS (10)
  - CARDIAC TAMPONADE [None]
  - CHRONIC MYELOMONOCYTIC LEUKAEMIA [None]
  - DYSPNOEA [None]
  - OEDEMA [None]
  - PERICARDIAL EFFUSION [None]
  - PLATELET COUNT DECREASED [None]
  - PLEURAL EFFUSION [None]
  - TREATMENT NONCOMPLIANCE [None]
  - WEIGHT INCREASED [None]
  - WHITE BLOOD CELL COUNT INCREASED [None]
